FAERS Safety Report 9691297 (Version 1)
Quarter: 2013Q4

REPORT INFORMATION
  Report Type: Spontaneous
  Country: US (occurrence: US)
  Receive Date: 20131115
  Receipt Date: 20131115
  Transmission Date: 20140711
  Serious: Yes (Hospitalization)
  Sender: FDA-Public Use
  Company Number: US-BAYER-2013-139109

PATIENT
  Age: 21 Year
  Sex: Female
  Weight: 47.62 kg

DRUGS (1)
  1. YASMIN [Suspect]

REACTIONS (3)
  - Deep vein thrombosis [Recovering/Resolving]
  - Deep vein thrombosis [None]
  - Pelvic venous thrombosis [None]
